FAERS Safety Report 12730536 (Version 1)
Quarter: 2016Q3

REPORT INFORMATION
  Report Type: Spontaneous
  Country: JP (occurrence: JP)
  Receive Date: 20160910
  Receipt Date: 20160910
  Transmission Date: 20161109
  Serious: Yes (Other)
  Sender: FDA-Public Use
  Company Number: JP-ALVOGEN-2016-ALVOGEN-028379

PATIENT
  Age: 71 Year
  Sex: Male

DRUGS (3)
  1. IFOSFAMIDE. [Suspect]
     Active Substance: IFOSFAMIDE
     Indication: SARCOMA
     Dosage: G/M2 ON DAYS 1-4, EVERY 3 WEEKS
  2. PAZOPANIB [Suspect]
     Active Substance: PAZOPANIB
     Indication: SARCOMA
  3. DOXORUBICIN [Suspect]
     Active Substance: DOXORUBICIN
     Indication: SARCOMA
     Dosage: MG/ML ON DAYS 1-3, EVERY 3 WEEKS

REACTIONS (3)
  - Pulmonary necrosis [Unknown]
  - Neutropenia [Unknown]
  - Fatigue [Unknown]
